FAERS Safety Report 10481781 (Version 1)
Quarter: 2014Q3

REPORT INFORMATION
  Report Type: Spontaneous
  Country: US (occurrence: None)
  Receive Date: 20140908
  Receipt Date: 20140908
  Transmission Date: 20150326
  Serious: Yes (Hospitalization)
  Sender: FDA-Public Use
  Company Number: 384382

PATIENT
  Age: 49 Year
  Sex: Female
  Weight: 107.9 kg

DRUGS (1)
  1. VICTOZA [Suspect]
     Active Substance: LIRAGLUTIDE
     Indication: LATENT AUTOIMMUNE DIABETES IN ADULTS
     Route: 058
     Dates: start: 20121213, end: 20121220

REACTIONS (2)
  - Weight decreased [None]
  - Pancreatitis [None]

NARRATIVE: CASE EVENT DATE: 20130102
